FAERS Safety Report 7822669-1 (Version None)
Quarter: 2011Q4

REPORT INFORMATION
  Report Type: 
  Country: None (occurrence: None)
  Receive Date: 20111018
  Receipt Date: 20111011
  Transmission Date: 20120403
  Serious: Yes (Disabling)
  Sender: FDA-Public Use
  Company Number: JP-ASTRAZENECA-2011SE57809

PATIENT
  Age: 81 Year
  Sex: Male
  Weight: 44 kg

DRUGS (10)
  1. ALMETA [Concomitant]
     Dosage: 2-3 DOSES DAILY AS REQUIRED
     Route: 062
  2. HIRUDOID [Concomitant]
     Dosage: 2-3 DOSES DAILY AS REQUIRED
     Route: 062
  3. STADERM [Concomitant]
     Dosage: AS REQUIRED, TWO TIMES A DAY
     Route: 062
  4. GASMOTIN [Concomitant]
     Route: 048
  5. HOKUNALIN:TAPE [Concomitant]
     Route: 062
  6. URIEF [Concomitant]
     Indication: BENIGN PROSTATIC HYPERPLASIA
     Route: 048
  7. HIRUDOID [Concomitant]
     Dosage: 2-3 DOSES DAILY AS REQUIRED
     Route: 062
  8. CERNILTON [Concomitant]
     Indication: BENIGN PROSTATIC HYPERPLASIA
     Route: 048
  9. STAYBLA OD [Concomitant]
     Indication: MICTURITION URGENCY
     Route: 048
  10. OMEPRAZOLE [Suspect]
     Indication: GASTROOESOPHAGEAL REFLUX DISEASE
     Route: 048

REACTIONS (1)
  - RHABDOMYOLYSIS [None]
